FAERS Safety Report 5199354-0 (Version None)
Quarter: 2007Q1

REPORT INFORMATION
  Report Type: 
  Country: None (occurrence: None)
  Receive Date: 20070104
  Receipt Date: 20061229
  Transmission Date: 20070707
  Serious: Yes (Other)
  Sender: FDA-Public Use
  Company Number: US-MERCK-0509USA02434

PATIENT
  Age: 75 Year
  Sex: Female

DRUGS (2)
  1. FOSAMAX [Suspect]
     Indication: OSTEOPOROSIS
     Route: 048
     Dates: start: 20000401, end: 20061201
  2. ZANTAC [Concomitant]
     Route: 065

REACTIONS (9)
  - COLON CANCER [None]
  - DYSGEUSIA [None]
  - ERYTHEMA [None]
  - FLUSHING [None]
  - GASTRITIS [None]
  - INTRAOCULAR PRESSURE TEST ABNORMAL [None]
  - JAW DISORDER [None]
  - LIMB DISCOMFORT [None]
  - THROMBOSIS [None]
